FAERS Safety Report 7103207-8 (Version None)
Quarter: 2010Q4

REPORT INFORMATION
  Report Type: 
  Country: None (occurrence: None)
  Receive Date: 20101115
  Receipt Date: 20090309
  Transmission Date: 20110411
  Serious: No
  Sender: FDA-Public Use
  Company Number: US-KINGPHARMUSA00001-K200900259

PATIENT
  Age: 59 Year
  Sex: Female
  Weight: 86.168 kg

DRUGS (5)
  1. CYTOMEL [Suspect]
     Indication: HYPOTHYROIDISM
     Dosage: 25 MCG, BID
     Route: 048
     Dates: start: 20090101
  2. ESTRADIOL                          /00045402/ [Concomitant]
     Indication: MENOPAUSE
     Dosage: UNK
  3. PROMETRIUM [Concomitant]
     Indication: MENOPAUSE
     Dosage: UNK
  4. VITAMIN C                          /00008001/ [Concomitant]
     Indication: SUPPLEMENTATION THERAPY
     Dosage: UNK
  5. VITAMINS WITH MINERALS [Concomitant]
     Indication: SUPPLEMENTATION THERAPY
     Dosage: UNK

REACTIONS (4)
  - BODY TEMPERATURE DECREASED [None]
  - CONSTIPATION [None]
  - DRUG EFFECT DECREASED [None]
  - DYSGEUSIA [None]
